FAERS Safety Report 10912017 (Version 1)
Quarter: 2015Q1

REPORT INFORMATION
  Report Type: Spontaneous
  Country: US (occurrence: None)
  Receive Date: 20150310
  Receipt Date: 20150310
  Transmission Date: 20150721
  Serious: Yes (Hospitalization)
  Sender: FDA-Public Use
  Company Number: None

PATIENT
  Age: 79 Year
  Sex: Female
  Weight: 62 kg

DRUGS (3)
  1. METFORMIN HYDROCHLORIDE. [Suspect]
     Active Substance: METFORMIN HYDROCHLORIDE
     Dosage: 0 MG, COMMENT:  C7 STARTED 2/17/15  PT/FAM DID NOT DOC ANY MEDS TAKEN SINCE 1/30/15.  PROVIDER TOOK OFF STUDY ON 2/23/2015 FOR SAFETY + COMPLIANCE CONCERNS  ?AGENT ADJUSTMENT:  DRUG WITHDRAWN?
     Dates: end: 20150222
  2. CARBOPLATIN. [Suspect]
     Active Substance: CARBOPLATIN
     Dates: end: 20150129
  3. TAXOL [Suspect]
     Active Substance: PACLITAXEL
     Dates: end: 20150129

REACTIONS (8)
  - Cerebral calcification [None]
  - Hallucination [None]
  - Abnormal behaviour [None]
  - Fear [None]
  - Agitation [None]
  - Confusional state [None]
  - Paranoia [None]
  - Cerebral atrophy [None]

NARRATIVE: CASE EVENT DATE: 20150226
